FAERS Safety Report 9689895 (Version 2)
Quarter: 2014Q1

REPORT INFORMATION
  Report Type: Spontaneous
  Country: US (occurrence: US)
  Receive Date: 20131115
  Receipt Date: 20140123
  Transmission Date: 20141002
  Serious: No
  Sender: FDA-Public Use
  Company Number: US-PFIZER INC-2013324232

PATIENT
  Age: 54 Year
  Sex: Female

DRUGS (3)
  1. CHANTIX [Suspect]
     Indication: SMOKING CESSATION THERAPY
     Dosage: 0.5 MG, 1X/DAY DAYS 1-3
     Route: 048
     Dates: start: 20130507, end: 201305
  2. CHANTIX [Suspect]
     Dosage: 0.5 MG, 2X/DAY X 4-7DAYS
     Route: 048
     Dates: start: 201305, end: 201305
  3. CHANTIX [Suspect]
     Dosage: 1 MG, 2X/DAY
     Route: 048
     Dates: start: 201305, end: 20130521

REACTIONS (3)
  - Malaise [Unknown]
  - Nausea [Recovered/Resolved]
  - Decreased appetite [Recovered/Resolved]
